FAERS Safety Report 7509175-9 (Version None)
Quarter: 2011Q2

REPORT INFORMATION
  Report Type: 
  Country: None (occurrence: None)
  Receive Date: 20110527
  Receipt Date: 20101013
  Transmission Date: 20111010
  Serious: No
  Sender: FDA-Public Use
  Company Number: US-MYLANLABS-2010S1019084

PATIENT
  Sex: Female

DRUGS (2)
  1. AMITRIPTYLINE HCL [Suspect]
     Indication: INSOMNIA
     Route: 048
     Dates: start: 20101012, end: 20101013
  2. UNSPECIFIED HERBAL [Concomitant]
     Indication: PHYTOTHERAPY

REACTIONS (6)
  - CHEST PAIN [None]
  - ABNORMAL DREAMS [None]
  - NAUSEA [None]
  - FEELING HOT [None]
  - HYPERTROPHY OF TONGUE PAPILLAE [None]
  - STOMATITIS [None]
